FAERS Safety Report 16508042 (Version 1)
Quarter: 2019Q3

REPORT INFORMATION
  Report Type: Report from Study
  Country: ES (occurrence: ES)
  Receive Date: 20190702
  Receipt Date: 20190702
  Transmission Date: 20191004
  Serious: Yes (Hospitalization, Other)
  Sender: FDA-Public Use
  Company Number: ES-BRISTOL-MYERS SQUIBB COMPANY-BMS-2019-059340

PATIENT
  Age: 73 Year
  Sex: Female
  Weight: 59 kg

DRUGS (2)
  1. NIVOLUMAB [Suspect]
     Active Substance: NIVOLUMAB
     Indication: CHORDOMA
     Dosage: 177 MILLIGRAM, Q2WK
     Route: 042
     Dates: start: 20180913
  2. IPILIMUMAB [Suspect]
     Active Substance: IPILIMUMAB
     Indication: CHORDOMA
     Dosage: 59 MILLIGRAM, Q6WK
     Route: 042
     Dates: start: 20180913

REACTIONS (1)
  - Renal failure [Recovered/Resolved]

NARRATIVE: CASE EVENT DATE: 20190613
